FAERS Safety Report 20639288 (Version 2)
Quarter: 2022Q2

REPORT INFORMATION
  Report Type: Spontaneous
  Country: US (occurrence: US)
  Receive Date: 20220326
  Receipt Date: 20220516
  Transmission Date: 20220721
  Serious: No
  Sender: FDA-Public Use
  Company Number: US-TEVA-2022-US-2013935

PATIENT
  Sex: Female

DRUGS (3)
  1. AJOVY [Suspect]
     Active Substance: FREMANEZUMAB-VFRM
     Dosage: 225 MG, MONTHLY DOSE
     Route: 058
  2. AJOVY [Suspect]
     Active Substance: FREMANEZUMAB-VFRM
  3. ERENUMAB [Suspect]
     Active Substance: ERENUMAB
     Route: 065

REACTIONS (4)
  - Hypersensitivity [Unknown]
  - Swelling [Unknown]
  - Urticaria [Unknown]
  - Allergic reaction to excipient [Unknown]
